FAERS Safety Report 8856208 (Version 1)
Quarter: 2012Q4

REPORT INFORMATION
  Report Type: Spontaneous
  Country: US (occurrence: None)
  Receive Date: 20121023
  Receipt Date: 20121023
  Transmission Date: 20130627
  Serious: Yes (Hospitalization, Other)
  Sender: FDA-Public Use
  Company Number: None

PATIENT
  Sex: Female
  Weight: 58.97 kg

DRUGS (2)
  1. INCIVEK [Suspect]
     Indication: VIRAL HEPATITIS C
     Route: 048
     Dates: start: 20121001, end: 20121015
  2. PEG-INTRON [Suspect]
     Indication: HEPATIC NEOPLASM MALIGNANT
     Route: 058
     Dates: start: 20121001, end: 20121015

REACTIONS (6)
  - Malaise [None]
  - Aphagia [None]
  - Diarrhoea [None]
  - Fatigue [None]
  - Asthenia [None]
  - Weight decreased [None]
